FAERS Safety Report 12083901 (Version 1)
Quarter: 2016Q1

REPORT INFORMATION
  Report Type: Spontaneous
  Country: US (occurrence: None)
  Receive Date: 20160216
  Receipt Date: 20160216
  Transmission Date: 20160526
  Serious: Yes (Other)
  Sender: FDA-Public Use
  Company Number: None

PATIENT
  Age: 35 Year
  Sex: Female
  Weight: 131.54 kg

DRUGS (5)
  1. SEROQUEL XR [Suspect]
     Active Substance: QUETIAPINE FUMARATE
     Indication: MAJOR DEPRESSION
     Route: 048
  2. EQUATE BRAND WOMENS MULTIVITAMIN [Concomitant]
  3. METHYLPHENIDATE. [Concomitant]
     Active Substance: METHYLPHENIDATE
  4. DULOXETINE. [Concomitant]
     Active Substance: DULOXETINE
  5. 5-METHYLFOLATE [Concomitant]

REACTIONS (7)
  - Nausea [None]
  - Joint swelling [None]
  - Peripheral swelling [None]
  - Headache [None]
  - Drug withdrawal syndrome [None]
  - Crying [None]
  - Dizziness [None]

NARRATIVE: CASE EVENT DATE: 20160206
